FAERS Safety Report 7598042-0 (Version None)
Quarter: 2011Q3

REPORT INFORMATION
  Report Type: 
  Country: None (occurrence: None)
  Receive Date: 20110708
  Receipt Date: 20110623
  Transmission Date: 20111222
  Serious: Yes (Other)
  Sender: FDA-Public Use
  Company Number: FR-GENENTECH-320770

PATIENT
  Sex: Male

DRUGS (3)
  1. VISUDYNE [Concomitant]
  2. LUCENTIS [Suspect]
     Indication: AGE-RELATED MACULAR DEGENERATION
     Dosage: UNK
     Route: 031
     Dates: start: 20090529
  3. FLUORESCEIN SODIUM [Concomitant]

REACTIONS (1)
  - TOXIC SKIN ERUPTION [None]
